FAERS Safety Report 11970998 (Version 1)
Quarter: 2016Q1

REPORT INFORMATION
  Report Type: Spontaneous
  Country: US (occurrence: None)
  Receive Date: 20160126
  Receipt Date: 20160126
  Transmission Date: 20160526
  Serious: Yes (Other)
  Sender: FDA-Public Use
  Company Number: None

PATIENT
  Age: 28 Year
  Sex: Female

DRUGS (1)
  1. ABILIFY MAINTENA [Suspect]
     Active Substance: ARIPIPRAZOLE
     Indication: SCHIZOAFFECTIVE DISORDER BIPOLAR TYPE
     Dosage: 400 MG EVERY 28 DAYS, INTRAMUSCULAR
     Route: 030
     Dates: start: 20151119, end: 20160125

REACTIONS (2)
  - Nervousness [None]
  - Anxiety [None]

NARRATIVE: CASE EVENT DATE: 20160121
